FAERS Safety Report 18183187 (Version 1)
Quarter: 2020Q3

REPORT INFORMATION
  Report Type: Spontaneous
  Country: CA (occurrence: CA)
  Receive Date: 20200821
  Receipt Date: 20200821
  Transmission Date: 20201103
  Serious: Yes (Other)
  Sender: FDA-Public Use
  Company Number: CA-SA-2020SA211407

PATIENT

DRUGS (10)
  1. ESCITALOPRAM [Concomitant]
     Active Substance: ESCITALOPRAM OXALATE
     Dosage: UNK
  2. IRBESARTAN. [Concomitant]
     Active Substance: IRBESARTAN
     Dosage: 20 MG, QD
     Route: 048
  3. LEFLUNOMIDE. [Suspect]
     Active Substance: LEFLUNOMIDE
     Dosage: UNK
     Dates: start: 201906, end: 201909
  4. METHOTREXATE. [Suspect]
     Active Substance: METHOTREXATE
     Dosage: UNK
     Dates: start: 201903, end: 201909
  5. CELEBREX [Concomitant]
     Active Substance: CELECOXIB
     Dosage: 200 MG, QD
     Route: 048
  6. IRBESARTAN. [Concomitant]
     Active Substance: IRBESARTAN
     Dosage: 150 MG, QD
     Route: 048
  7. LORAZEPAM. [Concomitant]
     Active Substance: LORAZEPAM
     Dosage: 0.25 MG, QD
     Route: 048
  8. OMNARIS [Concomitant]
     Active Substance: CICLESONIDE
     Dosage: UNK
  9. COMBIGAN [Concomitant]
     Active Substance: BRIMONIDINE TARTRATE\TIMOLOL MALEATE
     Dosage: UNK
  10. DIFLUPREDNATE [Concomitant]
     Active Substance: DIFLUPREDNATE
     Dosage: UNK

REACTIONS (9)
  - Musculoskeletal stiffness [Unknown]
  - Fatigue [Unknown]
  - Infection [Unknown]
  - Rheumatoid factor positive [Unknown]
  - Osteomyelitis [Unknown]
  - Pain [Unknown]
  - Transaminases increased [Unknown]
  - Swelling [Unknown]
  - Treatment failure [Unknown]
